FAERS Safety Report 20441699 (Version 1)
Quarter: 2022Q1

REPORT INFORMATION
  Report Type: Spontaneous
  Country: US (occurrence: US)
  Receive Date: 20220208
  Receipt Date: 20220208
  Transmission Date: 20220423
  Serious: No
  Sender: FDA-Public Use
  Company Number: US-IGSA-BIG0016845

PATIENT
  Age: 46 Year
  Sex: Male

DRUGS (2)
  1. ALPHANINE SD [Suspect]
     Active Substance: COAGULATION FACTOR IX HUMAN
     Indication: Factor IX deficiency
     Dosage: 480 INTERNATIONAL UNIT, Q.3D.
     Route: 042
     Dates: start: 201401
  2. ALPHANINE SD [Suspect]
     Active Substance: COAGULATION FACTOR IX HUMAN
     Dosage: 3000 INTERNATIONAL UNIT, Q.3D.
     Route: 042
     Dates: start: 202111

REACTIONS (1)
  - Haemorrhage [Not Recovered/Not Resolved]

NARRATIVE: CASE EVENT DATE: 20211101
